FAERS Safety Report 9064009 (Version 1)
Quarter: 2013Q1

REPORT INFORMATION
  Report Type: Spontaneous
  Country: US (occurrence: US)
  Receive Date: 20130213
  Receipt Date: 20130213
  Transmission Date: 20140127
  Serious: Yes (Other)
  Sender: FDA-Public Use
  Company Number: US-ALLERGAN-1214792US

PATIENT
  Age: 85 None
  Sex: Female

DRUGS (1)
  1. OZURDEX [Suspect]
     Indication: RETINAL OEDEMA
     Dosage: 0.7 MG, SINGLE
     Route: 031
     Dates: start: 20120423, end: 20120423

REACTIONS (1)
  - Device dislocation [Not Recovered/Not Resolved]
